FAERS Safety Report 19704748 (Version 5)
Quarter: 2023Q1

REPORT INFORMATION
  Report Type: Spontaneous
  Country: JP (occurrence: JP)
  Receive Date: 20210816
  Receipt Date: 20230313
  Transmission Date: 20230417
  Serious: Yes (Hospitalization, Other)
  Sender: FDA-Public Use
  Company Number: JP-NOVARTISPH-NVSJ2021JP011884

PATIENT
  Age: 4 Year
  Sex: Male
  Weight: 17 kg

DRUGS (9)
  1. NEORAL [Suspect]
     Active Substance: CYCLOSPORINE
     Indication: IgA nephropathy
     Dosage: 0.3 ML, BID, BEFORE MEAL
     Route: 048
     Dates: start: 20190704, end: 20190816
  2. NEORAL [Suspect]
     Active Substance: CYCLOSPORINE
  3. CELLCEPT [Suspect]
     Active Substance: MYCOPHENOLATE MOFETIL
     Indication: IgA nephropathy
     Dosage: 250 MG, BID
     Route: 048
     Dates: start: 20190720, end: 20210820
  4. PREDNISOLONE [Suspect]
     Active Substance: PREDNISOLONE
     Indication: IgA nephropathy
     Dosage: 10 MG, TID
     Route: 048
     Dates: start: 20190725, end: 20210701
  5. FAMOTIDINE [Suspect]
     Active Substance: FAMOTIDINE
     Indication: Gastric mucosal lesion
     Dosage: 8 MG, BID
     Route: 048
     Dates: start: 20190725, end: 20200511
  6. ENALAPRIL [Concomitant]
     Active Substance: ENALAPRIL
     Indication: IgA nephropathy
     Dosage: 1.25 MG, QD
     Route: 048
     Dates: start: 20190618
  7. DIPYRIDAMOLE [Concomitant]
     Active Substance: DIPYRIDAMOLE
     Indication: IgA nephropathy
     Dosage: UNK
     Route: 048
     Dates: start: 20190618, end: 20211022
  8. NIFEDIPINE [Concomitant]
     Active Substance: NIFEDIPINE
     Indication: Hypertension
     Dosage: 4 MG, QD
     Route: 048
     Dates: start: 20190710, end: 20201022
  9. MIZORIBINE [Concomitant]
     Active Substance: MIZORIBINE
     Indication: IgA nephropathy
     Dosage: 50 MG, BID
     Route: 048
     Dates: start: 20190618, end: 20190718

REACTIONS (8)
  - Posterior reversible encephalopathy syndrome [Recovered/Resolved]
  - Neck pain [Unknown]
  - Seizure [Unknown]
  - Pancreatitis acute [Recovered/Resolved]
  - Abdominal pain [Unknown]
  - Amylase increased [Recovering/Resolving]
  - Swelling [Unknown]
  - Hypertension [Recovered/Resolved]

NARRATIVE: CASE EVENT DATE: 20190816
